FAERS Safety Report 15069525 (Version 1)
Quarter: 2018Q2

REPORT INFORMATION
  Report Type: Spontaneous
  Country: US (occurrence: US)
  Receive Date: 20180626
  Receipt Date: 20180626
  Transmission Date: 20180711
  Serious: No
  Sender: FDA-Public Use
  Company Number: US-AMGEN-USASP2011038459

PATIENT
  Age: 27 Year
  Sex: Female

DRUGS (4)
  1. NEULASTA [Suspect]
     Active Substance: PEGFILGRASTIM
     Indication: CHEMOTHERAPY
     Dosage: 6 MG, UNK
  2. CARBOPLATIN. [Concomitant]
     Active Substance: CARBOPLATIN
  3. ETOPOSIDE. [Concomitant]
     Active Substance: ETOPOSIDE
  4. IFOSFAMIDE. [Concomitant]
     Active Substance: IFOSFAMIDE

REACTIONS (2)
  - Chest pain [Recovered/Resolved]
  - Sickle cell trait [Unknown]

NARRATIVE: CASE EVENT DATE: 201107
